FAERS Safety Report 20036419 (Version 1)
Quarter: 2021Q4

REPORT INFORMATION
  Report Type: Spontaneous
  Country: SE (occurrence: SE)
  Receive Date: 20211105
  Receipt Date: 20211105
  Transmission Date: 20220303
  Serious: Yes (Other)
  Sender: FDA-Public Use
  Company Number: SE-ORGANON-2006-150257-NL

PATIENT
  Age: 51 Year
  Sex: Female

DRUGS (4)
  1. REMERON [Suspect]
     Active Substance: MIRTAZAPINE
     Indication: Depression
     Dosage: IN JANUARY OR FEBRUARY, 1 TABLET PER EVENING
     Route: 048
     Dates: start: 2006, end: 20060622
  2. FUROSEMIDE [Concomitant]
     Active Substance: FUROSEMIDE
     Dosage: 20 MG, QD
  3. IMOVANE [Concomitant]
     Active Substance: ZOPICLONE
     Dosage: 5 MG, QD
  4. BRICANYL [Concomitant]
     Active Substance: TERBUTALINE SULFATE
     Dosage: DOSE: 0.25MG/ DOS
     Route: 055

REACTIONS (13)
  - Tongue paralysis [Unknown]
  - Dysphagia [Unknown]
  - Tongue oedema [Not Recovered/Not Resolved]
  - Dyspnoea [Unknown]
  - Oropharyngeal discomfort [Not Recovered/Not Resolved]
  - Sputum increased [Not Recovered/Not Resolved]
  - Paraesthesia oral [Not Recovered/Not Resolved]
  - Facial discomfort [Not Recovered/Not Resolved]
  - Nerve injury [Unknown]
  - Hypoaesthesia oral [Not Recovered/Not Resolved]
  - Musculoskeletal discomfort [Not Recovered/Not Resolved]
  - Muscular weakness [Not Recovered/Not Resolved]
  - Pain [Not Recovered/Not Resolved]

NARRATIVE: CASE EVENT DATE: 20060101
